FAERS Safety Report 5589463-6 (Version None)
Quarter: 2008Q1

REPORT INFORMATION
  Report Type: 
  Country: None (occurrence: None)
  Receive Date: 20080110
  Receipt Date: 20080110
  Transmission Date: 20080703
  Serious: Yes (Other)
  Sender: FDA-Public Use
  Company Number: None

PATIENT
  Age: 44 Year
  Sex: Male

DRUGS (1)
  1. CHANTIX [Suspect]
     Indication: SMOKING CESSATION THERAPY
     Dosage: 1MG BID PO A FEW DOSES PRIOR TO REPORT
     Route: 048

REACTIONS (3)
  - AFFECT LABILITY [None]
  - HOMICIDAL IDEATION [None]
  - NIGHTMARE [None]
